FAERS Safety Report 19654848 (Version 2)
Quarter: 2021Q4

REPORT INFORMATION
  Report Type: Spontaneous
  Country: FR (occurrence: FR)
  Receive Date: 20210804
  Receipt Date: 20211126
  Transmission Date: 20220303
  Serious: Yes (Disabling, Other)
  Sender: FDA-Public Use
  Company Number: FR-AUROBINDO-AUR-APL-2020-012453

PATIENT
  Age: 40 Year
  Sex: Male

DRUGS (8)
  1. ATENOLOL [Suspect]
     Active Substance: ATENOLOL
     Indication: Cardiac disorder
     Dosage: 50 MILLIGRAM
     Route: 048
  2. ATENOLOL [Suspect]
     Active Substance: ATENOLOL
     Dosage: 50 MILLIGRAM
     Route: 048
  3. ATENOLOL [Suspect]
     Active Substance: ATENOLOL
     Indication: Cardiac disorder
     Dosage: 50 MILLIGRAM
     Route: 048
  4. ATENOLOL [Suspect]
     Active Substance: ATENOLOL
     Indication: Cardiac disorder
     Dosage: 50 MILLIGRAM
     Route: 048
  5. ATENOLOL [Suspect]
     Active Substance: ATENOLOL
     Indication: Cardiac disorder
     Dosage: 50 MILLIGRAM
     Route: 048
  6. ATENOLOL [Suspect]
     Active Substance: ATENOLOL
     Indication: Cardiac disorder
     Dosage: 50 MILLIGRAM
     Route: 048
  7. ATENOLOL [Suspect]
     Active Substance: ATENOLOL
     Indication: Cardiac disorder
     Dosage: 50 MILLIGRAM
     Route: 048
  8. VERAPAMIL [Concomitant]
     Active Substance: VERAPAMIL HYDROCHLORIDE
     Indication: Product used for unknown indication
     Dosage: UNK
     Route: 065

REACTIONS (13)
  - Fatigue [Not Recovered/Not Resolved]
  - Erectile dysfunction [Not Recovered/Not Resolved]
  - Muscle contractions involuntary [Unknown]
  - Hypotension [Unknown]
  - Gastrointestinal disorder [Not Recovered/Not Resolved]
  - Libido decreased [Not Recovered/Not Resolved]
  - Blood pressure decreased [Not Recovered/Not Resolved]
  - Limb discomfort [Not Recovered/Not Resolved]
  - Gait disturbance [Not Recovered/Not Resolved]
  - Dyspnoea [Not Recovered/Not Resolved]
  - Constipation [Unknown]
  - Depression [Unknown]
  - Intentional product misuse [Unknown]

NARRATIVE: CASE EVENT DATE: 20200301
